FAERS Safety Report 20884612 (Version 1)
Quarter: 2022Q2

REPORT INFORMATION
  Report Type: Report from Study
  Country: ES (occurrence: ES)
  Receive Date: 20220527
  Receipt Date: 20220527
  Transmission Date: 20220721
  Serious: Yes (Hospitalization)
  Sender: FDA-Public Use
  Company Number: None

PATIENT
  Age: 87 Year
  Sex: Female

DRUGS (5)
  1. DILTIAZEM HYDROCHLORIDE [Suspect]
     Active Substance: DILTIAZEM HYDROCHLORIDE
     Indication: Product used for unknown indication
     Dosage: 180 MILLIGRAM, QD (30 CAPSULES)
     Route: 048
     Dates: start: 20220407, end: 20220506
  2. Nitrofix [Concomitant]
     Dosage: 5 MILLIGRAM, QD (30 PATCHES)
     Route: 062
     Dates: start: 20120618
  3. SINTROM [Concomitant]
     Active Substance: ACENOCOUMAROL
     Dosage: 4 MILLIGRAM (ACCORDING TO LABORATORY GUIDELINES)
     Route: 048
     Dates: start: 20220324
  4. TRAMADOL PARACETAMOL CINFA [Concomitant]
     Dosage: 1 DOSAGE FORM, Q8H (20 TABLETS)
     Route: 048
     Dates: start: 20120618
  5. ATORVASTATIN CALCIUM [Concomitant]
     Active Substance: ATORVASTATIN CALCIUM
     Dosage: 20 MILLIGRAM, QD (28 TABLETS)
     Route: 048
     Dates: start: 20160920

REACTIONS (6)
  - Pallor [Recovered/Resolved]
  - Vision blurred [Recovered/Resolved]
  - Hyperhidrosis [Recovered/Resolved]
  - Bradycardia [Recovered/Resolved]
  - Dizziness [Recovered/Resolved]
  - Hypotension [Recovered/Resolved]

NARRATIVE: CASE EVENT DATE: 20220506
